FAERS Safety Report 8120782-5 (Version None)
Quarter: 2012Q1

REPORT INFORMATION
  Report Type: 
  Country: None (occurrence: None)
  Receive Date: 20120207
  Receipt Date: 20120203
  Transmission Date: 20120608
  Serious: Yes (Death, Hospitalization)
  Sender: FDA-Public Use
  Company Number: US-ASTRAZENECA-2012SE07551

PATIENT
  Age: 30 Year

DRUGS (3)
  1. RISPERIDONE [Concomitant]
  2. SEROQUEL XR [Suspect]
     Indication: BIPOLAR DISORDER
     Route: 048
  3. PERCOCET [Concomitant]

REACTIONS (2)
  - GUN SHOT WOUND [None]
  - DEATH [None]
